FAERS Safety Report 4997733-5 (Version None)
Quarter: 2006Q1

REPORT INFORMATION
  Report Type: 
  Country: None (occurrence: None)
  Receive Date: 20060315
  Receipt Date: 20060127
  Transmission Date: 20060701
  Serious: Yes (Other)
  Sender: FDA-Public Use
  Company Number: 434278

PATIENT
  Sex: Female

DRUGS (3)
  1. BONIVA [Suspect]
  2. QUINIDINE SULPHATE (QUINIDINE SULPHATE) [Concomitant]
  3. HEART MEDICATIONS NOS (CARDIAC MEDICATION NOS) [Concomitant]

REACTIONS (1)
  - GASTRIC DISORDER [None]
